FAERS Safety Report 4479189-4 (Version None)
Quarter: 2004Q4

REPORT INFORMATION
  Report Type: 
  Country: None (occurrence: None)
  Receive Date: 20041019
  Receipt Date: 20041019
  Transmission Date: 20050328
  Serious: Yes (Other)
  Sender: FDA-Public Use
  Company Number: None

PATIENT
  Sex: Female
  Weight: 97.5234 kg

DRUGS (2)
  1. PERCOCET(ENDOCET) [Suspect]
     Indication: BACK PAIN
     Dosage: 5 MG /325 MG QID/ 3-6 MONTHS
  2. PERCOCET(ENDOCET) [Suspect]
     Indication: NECK PAIN
     Dosage: 5 MG /325 MG QID/ 3-6 MONTHS

REACTIONS (2)
  - HEADACHE [None]
  - PHARMACEUTICAL PRODUCT COMPLAINT [None]
